APPROVED DRUG PRODUCT: LEVETIRACETAM
Active Ingredient: LEVETIRACETAM
Strength: 100MG/ML
Dosage Form/Route: SOLUTION;ORAL
Application: A214673 | Product #001
Applicant: STRIDES PHARMA GLOBAL PTE LTD
Approved: Nov 20, 2023 | RLD: No | RS: No | Type: DISCN